FAERS Safety Report 8033020-9 (Version None)
Quarter: 2012Q1

REPORT INFORMATION
  Report Type: 
  Country: None (occurrence: None)
  Receive Date: 20120110
  Receipt Date: 20120105
  Transmission Date: 20120608
  Serious: No
  Sender: FDA-Public Use
  Company Number: IL-SANOFI-AVENTIS-2012SA000169

PATIENT
  Age: 60 Year
  Sex: Female

DRUGS (1)
  1. ENOXAPARIN SODIUM [Suspect]
     Route: 065

REACTIONS (1)
  - INJECTION SITE HYPERSENSITIVITY [None]
